FAERS Safety Report 25945453 (Version 2)
Quarter: 2025Q4

REPORT INFORMATION
  Report Type: Spontaneous
  Country: CA (occurrence: CA)
  Receive Date: 20251021
  Receipt Date: 20251209
  Transmission Date: 20260117
  Serious: Yes (Death, Life-Threatening, Hospitalization, Disabling)
  Sender: ROCHE
  Company Number: CA-ROCHE-10000412511

PATIENT
  Age: 43 Year
  Sex: Female
  Weight: 97 kg

DRUGS (7)
  1. RITUXIMAB [Suspect]
     Active Substance: RITUXIMAB
     Indication: Rheumatoid arthritis
     Route: 058
  2. MYCOPHENOLATE MOFETIL [Suspect]
     Active Substance: MYCOPHENOLATE MOFETIL
     Indication: Product used for unknown indication
     Route: 058
  3. ACETAMINOPHEN\CAFFEINE\CODEINE PHOSPHATE [Concomitant]
     Active Substance: ACETAMINOPHEN\CAFFEINE\CODEINE PHOSPHATE
  4. LISINOPRIL [Concomitant]
     Active Substance: LISINOPRIL
  5. ALBUTEROL [Concomitant]
     Active Substance: ALBUTEROL
  6. TYLENOL [Concomitant]
     Active Substance: ACETAMINOPHEN
  7. ZOPICLONE [Concomitant]
     Active Substance: ZOPICLONE

REACTIONS (28)
  - Bone erosion [Fatal]
  - Bronchitis [Fatal]
  - C-reactive protein abnormal [Fatal]
  - Drug-induced liver injury [Fatal]
  - Ear infection [Fatal]
  - Ear pain [Fatal]
  - Exostosis [Fatal]
  - Maternal exposure timing unspecified [Unknown]
  - Feeling hot [Fatal]
  - Frequent bowel movements [Fatal]
  - Hepatic cirrhosis [Fatal]
  - Inappropriate schedule of product administration [Fatal]
  - Joint stiffness [Fatal]
  - Laryngitis [Fatal]
  - Lupus vulgaris [Fatal]
  - Lupus-like syndrome [Fatal]
  - Osteoporosis [Fatal]
  - Prescribed overdose [Fatal]
  - Red blood cell sedimentation rate increased [Fatal]
  - Retinitis [Fatal]
  - Tachycardia [Fatal]
  - Therapy non-responder [Fatal]
  - Ulcer haemorrhage [Fatal]
  - Upper respiratory tract infection [Fatal]
  - Visual impairment [Fatal]
  - Bursitis [Fatal]
  - Crohn^s disease [Fatal]
  - Off label use [Fatal]
